FAERS Safety Report 15018577 (Version 1)
Quarter: 2018Q2

REPORT INFORMATION
  Report Type: Spontaneous
  Country: US (occurrence: US)
  Receive Date: 20180615
  Receipt Date: 20180615
  Transmission Date: 20180711
  Serious: No
  Sender: FDA-Public Use
  Company Number: US-BIOGEN-2018BI00592705

PATIENT
  Sex: Female

DRUGS (1)
  1. AVONEX [Suspect]
     Active Substance: INTERFERON BETA-1A
     Indication: MULTIPLE SCLEROSIS
     Route: 065
     Dates: start: 20060623

REACTIONS (6)
  - Tension [Unknown]
  - Influenza like illness [Unknown]
  - Cognitive disorder [Unknown]
  - Irritability [Unknown]
  - Intervertebral disc degeneration [Unknown]
  - Depression [Unknown]
